FAERS Safety Report 5700694-4 (Version None)
Quarter: 2008Q2

REPORT INFORMATION
  Report Type: 
  Country: None (occurrence: None)
  Receive Date: 20080409
  Receipt Date: 20080409
  Transmission Date: 20081010
  Serious: Yes (Life-Threatening)
  Sender: FDA-Public Use
  Company Number: None

PATIENT
  Sex: Female
  Weight: 70.5 kg

DRUGS (24)
  1. MINOXIDIL [Suspect]
     Indication: HYPERTENSION
     Dosage: 10 MG ONCE PO
     Route: 048
     Dates: start: 20071002, end: 20071002
  2. FOSINOPRIL SODIUM [Suspect]
     Indication: HYPERTENSION
     Dosage: 40 MG DAILY PO
     Route: 048
     Dates: start: 20061001, end: 20071002
  3. LOSARTAN POTASSIUM [Concomitant]
  4. AMLODIPINE [Concomitant]
  5. ATENOLOL [Concomitant]
  6. ISOSORBIDE MONONITRATE [Concomitant]
  7. HYDRALAZINE HCL [Concomitant]
  8. PHOSLO [Concomitant]
  9. RENAGEL [Concomitant]
  10. LOPID [Concomitant]
  11. NEPHLEX [Concomitant]
  12. SIROLIMUS [Concomitant]
  13. CINACALCET [Concomitant]
  14. SYNTHROID [Concomitant]
  15. INDOMETHACIN [Concomitant]
  16. PROTONIX [Concomitant]
  17. ALLOPURINOL [Concomitant]
  18. ERGOCALCIFEROL [Concomitant]
  19. FLONASE [Concomitant]
  20. MAGOX [Concomitant]
  21. PROMETHAZINE [Concomitant]
  22. ZEMPLAR [Concomitant]
  23. VICODIN [Concomitant]
  24. ALBUTEROL [Concomitant]

REACTIONS (3)
  - ANGIOEDEMA [None]
  - OBSTRUCTIVE AIRWAYS DISORDER [None]
  - SWOLLEN TONGUE [None]
